FAERS Safety Report 5674652-2 (Version None)
Quarter: 2008Q1

REPORT INFORMATION
  Report Type: 
  Country: None (occurrence: None)
  Receive Date: 20080320
  Receipt Date: 20080312
  Transmission Date: 20080703
  Serious: Yes (Other)
  Sender: FDA-Public Use
  Company Number: A0712237A

PATIENT
  Age: 78 Year
  Sex: Male

DRUGS (12)
  1. WELLBUTRIN XL [Suspect]
     Indication: DEPRESSION
     Dosage: 150MG PER DAY
     Route: 048
     Dates: start: 20070401
  2. ARICEPT [Suspect]
     Indication: DRUG USE FOR UNKNOWN INDICATION
     Route: 065
  3. SERTRALINE [Concomitant]
  4. ALTACE [Concomitant]
  5. TRICOR [Concomitant]
  6. MONONITRATE (UNKNOWN MEDICATION) [Concomitant]
  7. LOVASTATIN [Concomitant]
  8. VITAMIN B-12 [Concomitant]
  9. NEXIUM [Concomitant]
  10. NEUPRO [Concomitant]
  11. Q10 [Concomitant]
  12. COMBIVENT [Concomitant]

REACTIONS (9)
  - BALANCE DISORDER [None]
  - CONVULSION [None]
  - DIZZINESS [None]
  - DRUG ADMINISTRATION ERROR [None]
  - GAIT DISTURBANCE [None]
  - HALLUCINATION, AUDITORY [None]
  - HEADACHE [None]
  - PARKINSONISM [None]
  - WITHDRAWAL SYNDROME [None]
